FAERS Safety Report 23684054 (Version 1)
Quarter: 2024Q1

REPORT INFORMATION
  Report Type: Spontaneous
  Country: US (occurrence: US)
  Receive Date: 20240328
  Receipt Date: 20240328
  Transmission Date: 20240410
  Serious: No
  Sender: FDA-Public Use
  Company Number: US-MYLANLABS-2024M1024882

PATIENT
  Sex: Female
  Weight: 73.94 kg

DRUGS (2)
  1. EMSAM [Suspect]
     Active Substance: SELEGILINE
     Indication: Depression
     Dosage: 12 MILLIGRAM, QD (EVERY 24 HOURS)
     Route: 062
  2. OXYCODONE [Concomitant]
     Active Substance: OXYCODONE\OXYCODONE HYDROCHLORIDE
     Indication: Pain
     Dosage: 15 MILLIGRAM, QD
     Route: 065

REACTIONS (1)
  - Drug screen positive [Not Recovered/Not Resolved]
